FAERS Safety Report 21848651 (Version 1)
Quarter: 2023Q1

REPORT INFORMATION
  Report Type: Spontaneous
  Country: US (occurrence: US)
  Receive Date: 20230111
  Receipt Date: 20230111
  Transmission Date: 20230418
  Serious: Yes (Hospitalization)
  Sender: FDA-Public Use
  Company Number: US-AMGEN INC-USASP2023004241

PATIENT
  Age: 84 Year
  Sex: Male

DRUGS (1)
  1. LUMAKRAS [Suspect]
     Active Substance: SOTORASIB
     Indication: Non-small cell lung cancer
     Dosage: 960 MILLIGRAM, QD
     Route: 048
     Dates: start: 202210

REACTIONS (3)
  - COVID-19 [Recovered/Resolved]
  - Liver function test increased [Recovered/Resolved]
  - Blood bilirubin increased [Recovered/Resolved]

NARRATIVE: CASE EVENT DATE: 20220101
